FAERS Safety Report 8053200-6 (Version None)
Quarter: 2011Q4

REPORT INFORMATION
  Report Type: 
  Country: None (occurrence: None)
  Receive Date: 20111213
  Receipt Date: 20110815
  Transmission Date: 20120403
  Serious: Yes (Other)
  Sender: FDA-Public Use
  Company Number: 2011SP038467

PATIENT
  Age: 50 Year
  Sex: Female

DRUGS (2)
  1. SAPHRIS [Suspect]
     Indication: PRODUCT USED FOR UNKNOWN INDICATION
     Dosage: 5 MG BID 10 MG
     Dates: start: 20110701, end: 20110701
  2. NEURONTIN [Suspect]
     Indication: PRODUCT USED FOR UNKNOWN INDICATION
     Dosage: 300 MG; QD; 600 MG
     Dates: start: 20110701, end: 20110701

REACTIONS (1)
  - SEDATION [None]
